FAERS Safety Report 20063528 (Version 4)
Quarter: 2021Q4

REPORT INFORMATION
  Report Type: Spontaneous
  Country: ES (occurrence: ES)
  Receive Date: 20211112
  Receipt Date: 20211124
  Transmission Date: 20220304
  Serious: Yes (Death, Other)
  Sender: FDA-Public Use
  Company Number: ES-009507513-2111ESP003410

PATIENT
  Age: 68 Year
  Sex: Female
  Weight: 45 kg

DRUGS (4)
  1. PEMBROLIZUMAB [Suspect]
     Active Substance: PEMBROLIZUMAB
     Indication: Lung adenocarcinoma
     Dosage: UNK
     Route: 042
     Dates: start: 20200630, end: 20201215
  2. PEMETREXED [Concomitant]
     Active Substance: PEMETREXED
     Indication: Lung adenocarcinoma
     Dosage: 500 MILLIGRAM/SQ. METER, Q3W
     Route: 042
     Dates: start: 20200630, end: 20201114
  3. CARBOPLATIN [Concomitant]
     Active Substance: CARBOPLATIN
     Indication: Lung adenocarcinoma
     Dosage: DOSE: AUC 5, TOTAL DAILY DOSE: 347,38
     Route: 042
     Dates: start: 20200630, end: 20200901
  4. ZOLEDRONIC ACID [Concomitant]
     Active Substance: ZOLEDRONIC ACID
     Indication: Prophylaxis
     Dosage: 4 MILLIGRAM, Q3W
     Dates: start: 20200811, end: 20210209

REACTIONS (3)
  - Malignant neoplasm progression [Fatal]
  - Malignant neoplasm progression [Unknown]
  - Therapy non-responder [Fatal]

NARRATIVE: CASE EVENT DATE: 20200901
